FAERS Safety Report 9527664 (Version 1)
Quarter: 2013Q1

REPORT INFORMATION
  Report Type: Spontaneous
  Country: US (occurrence: None)
  Receive Date: 20130314
  Receipt Date: 20130314
  Transmission Date: 20140127
  Serious: No
  Sender: FDA-Public Use
  Company Number: 1212USA002872

PATIENT
  Sex: Male

DRUGS (3)
  1. VICTRELIS [Suspect]
     Dosage: 800 MG, TID, ORAL
     Route: 048
     Dates: start: 2012
  2. PEGINTRON [Suspect]
     Dosage: 120 MICROGRAM, QW, SUBCUTANEOUS
     Route: 058
     Dates: start: 2012
  3. LEXAPRO [Concomitant]

REACTIONS (1)
  - Depression [None]
